FAERS Safety Report 9297894 (Version 1)
Quarter: 2013Q2

REPORT INFORMATION
  Report Type: Report from Study
  Country: FR (occurrence: FR)
  Receive Date: 20130520
  Receipt Date: 20130520
  Transmission Date: 20140414
  Serious: Yes (Death)
  Sender: FDA-Public Use
  Company Number: FR-ROCHE-1088438

PATIENT
  Age: 55 Year
  Sex: Male
  Weight: 83 kg

DRUGS (9)
  1. RITUXIMAB [Suspect]
     Indication: MANTLE CELL LYMPHOMA
     Route: 065
     Dates: start: 20120124, end: 20120414
  2. RITUXIMAB [Suspect]
     Route: 065
     Dates: start: 20120605, end: 20120611
  3. CARMUSTINE [Suspect]
     Indication: MANTLE CELL LYMPHOMA
     Route: 065
     Dates: start: 20120605, end: 20120611
  4. ETOPOSIDE [Suspect]
     Indication: MANTLE CELL LYMPHOMA
     Route: 065
     Dates: start: 20120605, end: 20120611
  5. CYTARABINE [Suspect]
     Indication: MANTLE CELL LYMPHOMA
     Route: 065
     Dates: start: 20120124, end: 20120414
  6. CYTARABINE [Suspect]
     Route: 065
     Dates: start: 20120605, end: 20120611
  7. MELPHALAN [Suspect]
     Indication: MANTLE CELL LYMPHOMA
     Route: 065
     Dates: start: 20120605, end: 20120611
  8. DEXAMETHASONE [Suspect]
     Indication: MANTLE CELL LYMPHOMA
     Route: 065
     Dates: start: 20120124, end: 20120414
  9. CISPLATIN [Suspect]
     Indication: MANTLE CELL LYMPHOMA
     Route: 065
     Dates: start: 20120124, end: 20120414

REACTIONS (3)
  - Septic shock [Fatal]
  - Respiratory distress [Fatal]
  - Multi-organ failure [Fatal]
